FAERS Safety Report 11632133 (Version 1)
Quarter: 2015Q4

REPORT INFORMATION
  Report Type: Spontaneous
  Country: US (occurrence: None)
  Receive Date: 20151014
  Receipt Date: 20151014
  Transmission Date: 20160304
  Serious: Yes (Other)
  Sender: FDA-Public Use
  Company Number: None

PATIENT
  Age: 60 Year
  Sex: Female
  Weight: 113.4 kg

DRUGS (3)
  1. KLONIPIN [Concomitant]
     Active Substance: CLONAZEPAM
  2. HALOPERIDOL 5?- MYLAN [Suspect]
     Active Substance: HALOPERIDOL
     Indication: BIPOLAR DISORDER
     Dosage: 3 PILLS A DAY
     Route: 048
     Dates: start: 20150921, end: 20151012
  3. HALDOL [Concomitant]
     Active Substance: HALOPERIDOL

REACTIONS (7)
  - Somnambulism [None]
  - Hallucination, auditory [None]
  - Emotional disorder [None]
  - Somnolence [None]
  - Crying [None]
  - Feeling abnormal [None]
  - Trance [None]

NARRATIVE: CASE EVENT DATE: 20151009
